FAERS Safety Report 5822217-1 (Version None)
Quarter: 2008Q3

REPORT INFORMATION
  Report Type: 
  Country: None (occurrence: None)
  Receive Date: 20080723
  Receipt Date: 20080723
  Transmission Date: 20090109
  Serious: Yes (Hospitalization)
  Sender: FDA-Public Use
  Company Number: None

PATIENT
  Sex: Female
  Weight: 49.9 kg

DRUGS (1)
  1. ISRADIPINE [Suspect]
     Indication: HYPERTENSION
     Dosage: 10MG QAM PO, ?3 WEEKS
     Route: 048
     Dates: start: 20080627, end: 20080717

REACTIONS (4)
  - DEPRESSION [None]
  - MUSCLE SPASMS [None]
  - MYALGIA [None]
  - SUICIDAL IDEATION [None]
